FAERS Safety Report 4521238-9 (Version None)
Quarter: 2004Q4

REPORT INFORMATION
  Report Type: 
  Country: None (occurrence: None)
  Receive Date: 20041208
  Receipt Date: 20041201
  Transmission Date: 20050328
  Serious: Yes (Other)
  Sender: FDA-Public Use
  Company Number: AU-JNJFOC-20040907351

PATIENT
  Sex: Male

DRUGS (3)
  1. RISPERDAL CONSTA [Suspect]
     Indication: SCHIZOPHRENIA
     Route: 030
  2. VALPROATE SODIUM [Concomitant]
     Route: 049
  3. LAMOTRIGINE [Concomitant]
     Route: 049

REACTIONS (2)
  - MEDICATION ERROR [None]
  - SQUAMOUS CELL CARCINOMA [None]
